FAERS Safety Report 4803063-4 (Version None)
Quarter: 2005Q4

REPORT INFORMATION
  Report Type: 
  Country: None (occurrence: None)
  Receive Date: 20051019
  Receipt Date: 20051017
  Transmission Date: 20060501
  Serious: Yes (Hospitalization)
  Sender: FDA-Public Use
  Company Number: J200502441

PATIENT
  Age: 56 Year
  Sex: Female

DRUGS (1)
  1. SAWACILLIN [Suspect]
     Indication: DRUG USE FOR UNKNOWN INDICATION
     Route: 048
     Dates: start: 20050702

REACTIONS (1)
  - LIVER DISORDER [None]
